FAERS Safety Report 4784711-4 (Version None)
Quarter: 2005Q3

REPORT INFORMATION
  Report Type: 
  Country: None (occurrence: None)
  Receive Date: 20050929
  Receipt Date: 20050929
  Transmission Date: 20060218
  Serious: Yes (Other)
  Sender: FDA-Public Use
  Company Number: None

PATIENT
  Age: 70 Year
  Sex: Male
  Weight: 68.6 kg

DRUGS (8)
  1. GATIFLOXACIN [Suspect]
     Indication: URINARY TRACT INFECTION
     Dosage: 400MG,400MG QD, ORAL
     Route: 048
  2. GATIFLOXACIN [Concomitant]
  3. COUMADIN [Concomitant]
  4. MAGNESIUM OXIDE [Concomitant]
  5. METOPROLOL TARTRATE (IMMEDIATE RELEASE) [Concomitant]
  6. OMEPRAZOLE [Concomitant]
  7. DEXTROSE [Concomitant]
  8. INSULIN REG HUMAN 100 U/ML INJ NOVOLIN R [Concomitant]

REACTIONS (1)
  - RASH [None]
